FAERS Safety Report 5247735-9 (Version None)
Quarter: 2007Q1

REPORT INFORMATION
  Report Type: 
  Country: None (occurrence: None)
  Receive Date: 20070222
  Receipt Date: 20070207
  Transmission Date: 20070707
  Serious: Yes (Other)
  Sender: FDA-Public Use
  Company Number: A-CH2007-14185

PATIENT
  Age: 40 Year
  Sex: Female
  Weight: 39.2 kg

DRUGS (1)
  1. TRACLEER [Suspect]
     Indication: PULMONARY HYPERTENSION
     Dosage: SEE IMAGE
     Route: 048
     Dates: start: 20050822

REACTIONS (4)
  - MALABSORPTION [None]
  - OESOPHAGEAL DILATATION [None]
  - REFLUX OESOPHAGITIS [None]
  - THROMBOCYTOPENIA [None]
